FAERS Safety Report 24105059 (Version 1)
Quarter: 2024Q3

REPORT INFORMATION
  Report Type: Report from Study
  Country: BR (occurrence: BR)
  Receive Date: 20240717
  Receipt Date: 20240717
  Transmission Date: 20241017
  Serious: Yes (Other)
  Sender: JOHNSON AND JOHNSON
  Company Number: BR-JNJFOC-20240734301

PATIENT
  Age: 27 Year
  Sex: Male
  Weight: 73 kg

DRUGS (1)
  1. REMICADE [Suspect]
     Active Substance: INFLIXIMAB
     Indication: Crohn^s disease
     Dosage: LAST DRUG APPLICATION WAS REPORTED AS 16-MAY-2024
     Route: 041
     Dates: start: 20240401

REACTIONS (3)
  - Intestinal resection [Unknown]
  - Abdominal pain [Unknown]
  - Off label use [Unknown]
